FAERS Safety Report 25968787 (Version 1)
Quarter: 2025Q4

REPORT INFORMATION
  Report Type: Spontaneous
  Country: US (occurrence: None)
  Receive Date: 20251027
  Receipt Date: 20251027
  Transmission Date: 20260117
  Serious: Yes (Life-Threatening, Hospitalization)
  Sender: FDA-CTU
  Company Number: None

PATIENT
  Age: 36 Year
  Sex: Female
  Weight: 91.62 kg

DRUGS (1)
  1. MOUNJARO [Suspect]
     Active Substance: TIRZEPATIDE
     Indication: Type 2 diabetes mellitus
     Dosage: 2.5 MG WEEKLY SUBCUTANEOUS?
     Route: 058
     Dates: start: 20251020, end: 20251020

REACTIONS (2)
  - Anaphylactic reaction [None]
  - Eye irritation [None]

NARRATIVE: CASE EVENT DATE: 20251020
